FAERS Safety Report 7011576-2 (Version None)
Quarter: 2010Q3

REPORT INFORMATION
  Report Type: 
  Country: None (occurrence: None)
  Receive Date: 20100923
  Receipt Date: 20090331
  Transmission Date: 20110219
  Serious: No
  Sender: FDA-Public Use
  Company Number: US-WYE-H08502209

PATIENT
  Sex: Female
  Weight: 115.77 kg

DRUGS (7)
  1. PREMARIN [Suspect]
     Indication: BREAST CANCER METASTATIC
     Dosage: 1.25 MG 10 TIMES DAILY
     Route: 048
     Dates: start: 20081225
  2. LASIX [Concomitant]
  3. ERGOCALCIFEROL [Concomitant]
  4. CELEXA [Concomitant]
  5. ASCORBIC ACID [Concomitant]
  6. PRANDIN [Concomitant]
  7. PRAVACHOL [Concomitant]

REACTIONS (6)
  - ABNORMAL SENSATION IN EYE [None]
  - BLOOD GLUCOSE INCREASED [None]
  - DIARRHOEA [None]
  - DIZZINESS [None]
  - OEDEMA PERIPHERAL [None]
  - PAIN IN EXTREMITY [None]
